FAERS Safety Report 18807907 (Version 1)
Quarter: 2021Q1

REPORT INFORMATION
  Report Type: Spontaneous
  Country: US (occurrence: US)
  Receive Date: 20210129
  Receipt Date: 20210129
  Transmission Date: 20210419
  Serious: Yes (Life-Threatening, Hospitalization, Other)
  Sender: FDA-Public Use
  Company Number: None

PATIENT
  Age: 63 Year
  Sex: Male
  Weight: 115 kg

DRUGS (22)
  1. TAMSULOSIN [Concomitant]
     Active Substance: TAMSULOSIN
  2. AZITHROMYCIN ANHYDROUS. [Concomitant]
     Active Substance: AZITHROMYCIN ANHYDROUS
     Dates: start: 20210119, end: 20210125
  3. CANAGLIFLOZIN [Concomitant]
     Active Substance: CANAGLIFLOZIN
  4. BAMLANIVIMAB. [Suspect]
     Active Substance: BAMLANIVIMAB
     Indication: COVID-19
     Dosage: ?          OTHER FREQUENCY:ONCE;?
     Route: 042
     Dates: start: 20210122, end: 20210122
  5. DEXAMETHASONE. [Concomitant]
     Active Substance: DEXAMETHASONE
     Dates: start: 20210125
  6. METOPROLOL. [Concomitant]
     Active Substance: METOPROLOL
     Dates: start: 20210125
  7. NOVOLOG MIX 70/30 [Concomitant]
     Active Substance: INSULIN ASPART
  8. HYDROCHLOROTHIAZIDE. [Concomitant]
     Active Substance: HYDROCHLOROTHIAZIDE
  9. WELLBUTRIN XL [Concomitant]
     Active Substance: BUPROPION HYDROCHLORIDE
  10. DILTIAZEM. [Concomitant]
     Active Substance: DILTIAZEM
     Dates: start: 20210126, end: 20210126
  11. GLUCOSE [Concomitant]
     Active Substance: DEXTROSE
     Dates: start: 20210126, end: 20210126
  12. INSULIN REGULAR [Concomitant]
     Active Substance: INSULIN NOS
     Dates: start: 20210125
  13. PIPERACILLIAN? TAZOBACTUM [Concomitant]
     Dates: start: 20210126
  14. SODIUM BICARBONATE. [Concomitant]
     Active Substance: SODIUM BICARBONATE
     Dates: start: 20210125
  15. LOSARTAN. [Concomitant]
     Active Substance: LOSARTAN
  16. GLIPIZIDE. [Concomitant]
     Active Substance: GLIPIZIDE
  17. LORAZEPAM. [Concomitant]
     Active Substance: LORAZEPAM
     Dates: start: 20210125
  18. PREDNISONE. [Concomitant]
     Active Substance: PREDNISONE
  19. HEAPRIN [Concomitant]
     Dates: start: 20210125
  20. KETOROLAC [Concomitant]
     Active Substance: KETOROLAC TROMETHAMINE
     Dates: start: 20210126
  21. POTASSIUM CHLORIDE. [Concomitant]
     Active Substance: POTASSIUM CHLORIDE
     Dates: start: 20210126
  22. VANCOMYCIN [Concomitant]
     Active Substance: VANCOMYCIN
     Dates: start: 20210126

REACTIONS (18)
  - Albumin globulin ratio increased [None]
  - Pain [None]
  - Pyrexia [None]
  - Encephalopathy [None]
  - Respiratory rate increased [None]
  - Diabetic ketoacidosis [None]
  - Hypernatraemia [None]
  - Fluid retention [None]
  - Metabolic acidosis [None]
  - Chills [None]
  - Illness [None]
  - Lung infiltration [None]
  - Leukocytosis [None]
  - Right ventricular dilatation [None]
  - Tachypnoea [None]
  - Productive cough [None]
  - Pneumonia [None]
  - Ejection fraction decreased [None]

NARRATIVE: CASE EVENT DATE: 20210125
